FAERS Safety Report 9298771 (Version 2)
Quarter: 2013Q2

REPORT INFORMATION
  Report Type: Spontaneous
  Country: ES (occurrence: ES)
  Receive Date: 20130520
  Receipt Date: 20130607
  Transmission Date: 20140414
  Serious: Yes (Other)
  Sender: FDA-Public Use
  Company Number: ES-GLAXOSMITHKLINE-B0891340A

PATIENT
  Age: 53 Year
  Sex: Female

DRUGS (3)
  1. TROBALT [Suspect]
     Indication: PARTIAL SEIZURES
     Dosage: 1200MG PER DAY
     Route: 048
     Dates: start: 20070327
  2. LEVETIRACETAM [Concomitant]
     Indication: PARTIAL SEIZURES
     Dosage: 3000MG PER DAY
  3. ESLICARBAZEPINE [Concomitant]
     Indication: PARTIAL SEIZURES
     Dosage: 1200MG PER DAY

REACTIONS (3)
  - Retinal degeneration [Not Recovered/Not Resolved]
  - Pigmentation lip [Not Recovered/Not Resolved]
  - Nail pigmentation [Not Recovered/Not Resolved]
